FAERS Safety Report 9409981 (Version 1)
Quarter: 2013Q3

REPORT INFORMATION
  Report Type: Spontaneous
  Country: IL (occurrence: IL)
  Receive Date: 20130719
  Receipt Date: 20130719
  Transmission Date: 20140515
  Serious: Yes (Hospitalization, Other)
  Sender: FDA-Public Use
  Company Number: IL-NOVOPROD-382947

PATIENT
  Age: 74 Year
  Sex: Male
  Weight: 79 kg

DRUGS (7)
  1. VICTOZA [Suspect]
     Indication: TYPE 2 DIABETES MELLITUS
     Dosage: 1.8 MG, QD
     Route: 065
     Dates: start: 201110
  2. GLUCOMIN [Concomitant]
     Dosage: UNK
     Route: 065
     Dates: end: 201209
  3. GLUCO-RITE [Concomitant]
     Dosage: UNK
     Route: 065
  4. CADEX                              /00082201/ [Concomitant]
     Dosage: UNK
     Route: 065
  5. CARTIA                             /00002701/ [Concomitant]
     Dosage: UNK
     Route: 065
  6. PROCOR                             /00133102/ [Concomitant]
     Dosage: UNK
     Route: 065
  7. PRAVASTATIN [Concomitant]
     Dosage: UNK
     Route: 065

REACTIONS (1)
  - Pancreatic carcinoma metastatic [Not Recovered/Not Resolved]
